FAERS Safety Report 8650099 (Version 2)
Quarter: 2012Q4

REPORT INFORMATION
  Report Type: 
  Country: BR (occurrence: BR)
  Receive Date: 20120705
  Receipt Date: 20121004
  Transmission Date: 20130627
  Serious: Yes (Other)
  Sender: FDA-Public Use
  Company Number: BR-BAYER-2012-060237

PATIENT
  Age: 26 Year
  Sex: Female
  Weight: 53 kg

DRUGS (3)
  1. QLAIRA [Suspect]
     Indication: CONTRACEPTION
     Dosage: 1 DF, QD
     Route: 048
     Dates: start: 201201
  2. QLAIRA [Suspect]
     Indication: POLYCYSTIC OVARIES
  3. CORISTINA D [Concomitant]
     Indication: NASOPHARYNGITIS
     Dosage: 1 DF, BID
     Route: 048
     Dates: start: 20120909

REACTIONS (9)
  - Tumour rupture [None]
  - Metrorrhagia [None]
  - Hypomenorrhoea [Recovered/Resolved]
  - Menstruation delayed [Not Recovered/Not Resolved]
  - Muscle spasms [Not Recovered/Not Resolved]
  - Vaginal discharge [Recovered/Resolved]
  - Uterine leiomyoma [Recovered/Resolved]
  - Breast swelling [Not Recovered/Not Resolved]
  - Breast pain [Recovered/Resolved]
